FAERS Safety Report 7353657-X (Version None)
Quarter: 2011Q1

REPORT INFORMATION
  Report Type: 
  Country: None (occurrence: None)
  Receive Date: 20110303
  Receipt Date: 20101124
  Transmission Date: 20110831
  Serious: Yes (Other)
  Sender: FDA-Public Use
  Company Number: US-005564

PATIENT
  Age: 33 Year
  Sex: Female
  Weight: 82 kg

DRUGS (4)
  1. GLIPIZIDE [Concomitant]
  2. METFORMIN (METFORMIN) [Concomitant]
  3. ISOVUE-300 [Suspect]
     Indication: COMPUTERISED TOMOGRAM ABDOMEN
     Dosage: 100ML ONCE INTRAVENOUS (NOT OTHERWISE SPECIFIED)
     Route: 042
     Dates: start: 20101123, end: 20101123
  4. ISOVUE-300 [Suspect]
     Indication: ABDOMINAL PAIN UPPER
     Dosage: 100ML ONCE INTRAVENOUS (NOT OTHERWISE SPECIFIED)
     Route: 042
     Dates: start: 20101123, end: 20101123

REACTIONS (1)
  - ANAPHYLACTOID REACTION [None]
